FAERS Safety Report 7097428-0 (Version None)
Quarter: 2010Q4

REPORT INFORMATION
  Report Type: 
  Country: None (occurrence: None)
  Receive Date: 20101111
  Receipt Date: 20101109
  Transmission Date: 20110411
  Serious: Yes (Other)
  Sender: FDA-Public Use
  Company Number: JP-PFIZER INC-2010143291

PATIENT
  Sex: Female

DRUGS (2)
  1. NORVASC [Suspect]
     Dosage: UNK
     Route: 048
     Dates: end: 20101001
  2. SELARA [Suspect]
     Dosage: UNK
     Route: 048
     Dates: start: 20101001

REACTIONS (1)
  - BLOOD CREATINE PHOSPHOKINASE INCREASED [None]
